FAERS Safety Report 14220352 (Version 2)
Quarter: 2018Q1

REPORT INFORMATION
  Report Type: Spontaneous
  Country: US (occurrence: US)
  Receive Date: 20171123
  Receipt Date: 20180123
  Transmission Date: 20180508
  Serious: Yes (Death)
  Sender: FDA-Public Use
  Company Number: US-JNJFOC-20171031430

PATIENT
  Age: 36 Year
  Sex: Male
  Weight: 101.61 kg

DRUGS (4)
  1. ALPRAZOLAM. [Suspect]
     Active Substance: ALPRAZOLAM
     Indication: PRODUCT USED FOR UNKNOWN INDICATION
     Route: 065
  2. DURAGESIC [Suspect]
     Active Substance: FENTANYL
     Indication: TRIGEMINAL NEURALGIA
     Dosage: 50 MCG/HR EVERY 3 DAYS
     Route: 062
  3. DURAGESIC [Suspect]
     Active Substance: FENTANYL
     Indication: TRIGEMINAL NEURALGIA
     Dosage: 37.5 MCG/HR ONE MATRIX PATCH FOR EVERY 3 DAYS,
     Route: 062
     Dates: end: 20160705
  4. ZOLPIDEM [Suspect]
     Active Substance: ZOLPIDEM\ZOLPIDEM TARTRATE
     Indication: PRODUCT USED FOR UNKNOWN INDICATION
     Route: 065

REACTIONS (3)
  - Vomiting [Unknown]
  - Nausea [Unknown]
  - Toxicity to various agents [Fatal]

NARRATIVE: CASE EVENT DATE: 20160705
